FAERS Safety Report 6626488-3 (Version None)
Quarter: 2010Q1

REPORT INFORMATION
  Report Type: 
  Country: None (occurrence: None)
  Receive Date: 20100309
  Receipt Date: 20100309
  Transmission Date: 20100710
  Serious: Yes (Other)
  Sender: FDA-Public Use
  Company Number: None

PATIENT
  Age: 54 Year
  Sex: Female
  Weight: 81.6475 kg

DRUGS (1)
  1. BALSALAZIDE  150MG ROXANE [Suspect]
     Indication: IRRITABLE BOWEL SYNDROME
     Dosage: 150 MG BID PO
     Route: 048
     Dates: start: 20100215, end: 20100308

REACTIONS (3)
  - DRUG EFFECT DECREASED [None]
  - IRRITABLE BOWEL SYNDROME [None]
  - PRODUCT SUBSTITUTION ISSUE [None]
